FAERS Safety Report 10564328 (Version 1)
Quarter: 2014Q4

REPORT INFORMATION
  Report Type: Spontaneous
  Country: FI (occurrence: FI)
  Receive Date: 20141104
  Receipt Date: 20141104
  Transmission Date: 20150529
  Serious: Yes (Other)
  Sender: FDA-Public Use
  Company Number: FI-ELI_LILLY_AND_COMPANY-FI201410009635

PATIENT
  Age: 64 Year
  Sex: Male

DRUGS (8)
  1. KEFEXIN [Concomitant]
     Active Substance: CEPHALEXIN
     Dosage: 500 MG, TID
     Route: 065
  2. DAKTARIN                           /00310801/ [Concomitant]
     Active Substance: MICONAZOLE NITRATE
  3. ZYPADHERA [Suspect]
     Active Substance: OLANZAPINE PAMOATE
     Indication: SCHIZOPHRENIA, PARANOID TYPE
     Dosage: 300 MG, 2/M
     Route: 030
     Dates: start: 20140829, end: 20141010
  4. LANTUS [Concomitant]
     Active Substance: INSULIN GLARGINE
     Dosage: 36 DF, UNKNOWN
     Route: 065
  5. PANADOL [Concomitant]
     Active Substance: ACETAMINOPHEN
     Dosage: 1 G, TID
  6. NOVORAPID [Concomitant]
     Active Substance: INSULIN ASPART
     Dosage: 8 DF, UNKNOWN
     Route: 065
  7. EMGESAN [Concomitant]
     Dosage: 250 MG, BID
     Route: 065
  8. BURANA [Concomitant]
     Active Substance: IBUPROFEN
     Dosage: 400 MG, TID
     Route: 065

REACTIONS (5)
  - Gait disturbance [Recovered/Resolved]
  - Dyspnoea [Recovered/Resolved]
  - Balance disorder [Recovered/Resolved]
  - Oxygen saturation decreased [Recovered/Resolved]
  - Asthenia [Recovering/Resolving]

NARRATIVE: CASE EVENT DATE: 20141010
